FAERS Safety Report 4596988-9 (Version None)
Quarter: 2005Q1

REPORT INFORMATION
  Report Type: 
  Country: None (occurrence: None)
  Receive Date: 20050228
  Receipt Date: 20041108
  Transmission Date: 20050727
  Serious: Yes (Hospitalization)
  Sender: FDA-Public Use
  Company Number: 2004242476US

PATIENT
  Age: 60 Year
  Sex: Female
  Weight: 91 kg

DRUGS (8)
  1. CELECOXIB (CELECOXIB) [Suspect]
     Indication: BREAST CANCER
     Dosage: 800 MG (400 MG, 2 IN 1 D), ORAL
     Route: 048
     Dates: start: 20040630, end: 20041101
  2. EXEMESTANE [Suspect]
     Indication: BREAST CANCER
     Dosage: 25 MG (25 M, 1 IN 1 D), ORAL
     Route: 048
     Dates: start: 20040630, end: 20041101
  3. FLUOXETINE HYDROCHLORIDE [Concomitant]
  4. IBUPROFEN [Concomitant]
  5. GLYBURIDE [Concomitant]
  6. LEVOFLOXACIN [Concomitant]
  7. PERCOCET-5 (ACETYLSALICYLIC ACID, OXYCODONE HYDROCHLORIDE, OXYCODONE T [Concomitant]
  8. PROCHLORPERAZINE EDISYLATE (PERCHLORPERAZINE EDISYLATE) [Concomitant]

REACTIONS (7)
  - ABDOMINAL PAIN LOWER [None]
  - CALCULUS URETERIC [None]
  - DIABETES MELLITUS [None]
  - HYDRONEPHROSIS [None]
  - NAUSEA [None]
  - NEPHROLITHIASIS [None]
  - VOMITING [None]
